FAERS Safety Report 7630721-9 (Version None)
Quarter: 2011Q3

REPORT INFORMATION
  Report Type: 
  Country: None (occurrence: None)
  Receive Date: 20110722
  Receipt Date: 20110715
  Transmission Date: 20111222
  Serious: Yes (Disabling, Other)
  Sender: FDA-Public Use
  Company Number: PT-MERCK-1107PRT00009

PATIENT
  Age: 78 Year
  Sex: Female

DRUGS (8)
  1. RAMIPRIL [Concomitant]
     Indication: HYPERTENSION
     Route: 065
  2. MAGNESIUM PIDOLATE [Concomitant]
     Indication: MYALGIA
     Route: 065
  3. TRAZODONE HYDROCHLORIDE [Concomitant]
     Indication: DEPRESSION
     Route: 065
  4. FOSAMAX PLUS D [Suspect]
     Indication: OSTEOPOROSIS
     Route: 048
     Dates: start: 20110413, end: 20110611
  5. CHOLECALCIFEROL [Concomitant]
     Indication: OSTEOPOROSIS
     Route: 065
  6. CALCIUM CARBONATE [Concomitant]
     Indication: OSTEOPOROSIS
     Route: 065
  7. ETORICOXIB [Concomitant]
     Indication: PAIN
     Route: 065
  8. ASPIRIN [Concomitant]
     Indication: PROPHYLAXIS
     Route: 065

REACTIONS (4)
  - MALAISE [None]
  - PRURITUS GENERALISED [None]
  - FATIGUE [None]
  - RASH GENERALISED [None]
